FAERS Safety Report 9783178 (Version 1)
Quarter: 2013Q4

REPORT INFORMATION
  Report Type: Spontaneous
  Country: GB (occurrence: GB)
  Receive Date: 20131226
  Receipt Date: 20131226
  Transmission Date: 20140711
  Serious: Yes (Other)
  Sender: FDA-Public Use
  Company Number: GB-SA-2013SA132292

PATIENT
  Age: 18 Year
  Sex: Female

DRUGS (2)
  1. FEXOFENADINE HYDROCHLORIDE [Suspect]
     Indication: URTICARIA
     Route: 065
  2. RANITIDINE HYDROCHLORIDE [Concomitant]

REACTIONS (2)
  - Grand mal convulsion [Unknown]
  - Overdose [Unknown]
